FAERS Safety Report 17600687 (Version 8)
Quarter: 2020Q3

REPORT INFORMATION
  Report Type: Report from Study
  Country: DE (occurrence: DE)
  Receive Date: 20200330
  Receipt Date: 20200914
  Transmission Date: 20201102
  Serious: Yes (Hospitalization)
  Sender: FDA-Public Use
  Company Number: DE-TAKEDA-2020TUS016105

PATIENT
  Age: 75 Year
  Sex: Male

DRUGS (10)
  1. DEXAMETHASONE. [Suspect]
     Active Substance: DEXAMETHASONE
     Indication: PLASMA CELL MYELOMA
     Dosage: 40 MILLIGRAM
     Route: 048
     Dates: start: 20190516
  2. ACICLOVIR [Concomitant]
     Active Substance: ACYCLOVIR
     Indication: INFECTION PROPHYLAXIS
     Dosage: 200 MILLIGRAM, BID
     Route: 048
     Dates: start: 201905
  3. IXAZOMIB [Suspect]
     Active Substance: IXAZOMIB
     Dosage: 4 MILLIGRAM
     Route: 048
     Dates: start: 20200123, end: 20200320
  4. POMALIDOMIDE [Suspect]
     Active Substance: POMALIDOMIDE
     Indication: PLASMA CELL MYELOMA
     Dosage: 3 MILLIGRAM, QD
     Route: 048
     Dates: start: 20190516
  5. TAMSULOSIN [Concomitant]
     Active Substance: TAMSULOSIN
     Indication: BENIGN PROSTATIC HYPERPLASIA
     Dosage: 0.4 MILLIGRAM, QD
     Route: 048
     Dates: start: 2020
  6. POMALIDOMIDE [Suspect]
     Active Substance: POMALIDOMIDE
     Dosage: 3 MILLIGRAM, QD
     Route: 048
     Dates: start: 20200120, end: 20200325
  7. DEXAMETHASONE. [Suspect]
     Active Substance: DEXAMETHASONE
     Dosage: 40 MILLIGRAM
     Route: 048
     Dates: start: 20200123, end: 20200320
  8. IXAZOMIB [Suspect]
     Active Substance: IXAZOMIB
     Indication: PLASMA CELL MYELOMA
     Dosage: 4 MILLIGRAM
     Route: 048
     Dates: start: 20190516
  9. TORASEMID [Concomitant]
     Active Substance: TORSEMIDE
     Indication: FLUID IMBALANCE
     Dosage: 10 GRAM, QD
     Route: 048
  10. PREDNISOLON                        /00016201/ [Concomitant]
     Active Substance: PREDNISOLONE
     Indication: ANKYLOSING SPONDYLITIS
     Dosage: 5 MILLIGRAM, QD
     Route: 048
     Dates: start: 2020

REACTIONS (1)
  - Empyema [Recovered/Resolved]

NARRATIVE: CASE EVENT DATE: 20200324
